FAERS Safety Report 7489522-7 (Version None)
Quarter: 2011Q2

REPORT INFORMATION
  Report Type: 
  Country: None (occurrence: None)
  Receive Date: 20110519
  Receipt Date: 20110512
  Transmission Date: 20111010
  Serious: Yes (Hospitalization, Other)
  Sender: FDA-Public Use
  Company Number: US-BRISTOL-MYERS SQUIBB COMPANY-15718299

PATIENT
  Age: 84 Year
  Sex: Male
  Weight: 67 kg

DRUGS (9)
  1. COREG [Concomitant]
     Dates: start: 20070902
  2. PEMETREXED DISODIUM [Suspect]
     Indication: NON-SMALL CELL LUNG CANCER STAGE IV
     Dosage: DAY1,375MG/M2,05MAY10-ONG,LAST DOSE ON 05APR11
     Route: 042
  3. PEPCID [Concomitant]
     Dates: start: 20100126
  4. BEVACIZUMAB [Suspect]
     Indication: NON-SMALL CELL LUNG CANCER STAGE IV
     Dosage: DAY1,05MAY10-ONG,LAST DOSE ON 05APR11
     Route: 042
  5. DIGOXIN [Concomitant]
     Dates: start: 20090902
  6. NORVASC [Concomitant]
     Dates: start: 20100414
  7. COLCHICINE [Concomitant]
     Dates: start: 20090721
  8. FOLIC ACID [Concomitant]
     Dates: start: 20100112
  9. CARBOPLATIN [Suspect]
     Indication: NON-SMALL CELL LUNG CANCER STAGE IV
     Dosage: DAY1,6AUC,LAST DOSE ON 05APR11
     Route: 042

REACTIONS (3)
  - CEREBROVASCULAR ACCIDENT [None]
  - DIARRHOEA [None]
  - HYPOTHERMIA [None]
